FAERS Safety Report 6574800-6 (Version None)
Quarter: 2010Q1

REPORT INFORMATION
  Report Type: 
  Country: None (occurrence: None)
  Receive Date: 20100209
  Receipt Date: 20100126
  Transmission Date: 20100710
  Serious: Yes (Other)
  Sender: FDA-Public Use
  Company Number: PHHY2009DK57899

PATIENT
  Sex: Female

DRUGS (8)
  1. ZOMETA [Suspect]
     Indication: METASTASES TO BONE
     Dosage: 4 MG, TIW
     Route: 042
     Dates: start: 20070419, end: 20081017
  2. TAXOTERE [Concomitant]
     Indication: BREAST CANCER
     Dosage: 40 MG/ML, TIW
     Route: 042
     Dates: start: 20061219, end: 20071001
  3. BONDRONAT [Concomitant]
     Dosage: 50 MG ONCE DAILY
     Dates: start: 20081017
  4. ARIMIDEX [Concomitant]
     Dosage: 1 MG, QD
     Dates: start: 20081017
  5. CYCLOPHOSPHAMIDE [Concomitant]
  6. EPIRUBICIN [Concomitant]
  7. FLUOROURACIL [Concomitant]
  8. CHEMOTHERAPEUTICS [Concomitant]
     Dosage: UNK
     Route: 042
     Dates: start: 20071023, end: 20080930

REACTIONS (3)
  - OSTEONECROSIS [None]
  - PAIN [None]
  - PEPTOSTREPTOCOCCUS INFECTION [None]
